FAERS Safety Report 24437209 (Version 2)
Quarter: 2024Q4

REPORT INFORMATION
  Report Type: Spontaneous
  Country: JP (occurrence: JP)
  Receive Date: 20241015
  Receipt Date: 20241105
  Transmission Date: 20250115
  Serious: Yes (Life-Threatening)
  Sender: GLAXOSMITHKLINE
  Company Number: JP-TAKEDA-2024TJP014825

PATIENT

DRUGS (2)
  1. ZEJULA [Suspect]
     Active Substance: NIRAPARIB
     Indication: Ovarian cancer
     Dosage: 200 MG, QD
     Route: 048
     Dates: start: 20240604
  2. ZEJULA [Suspect]
     Active Substance: NIRAPARIB
     Dosage: 100 MG
     Route: 048

REACTIONS (1)
  - Anaemia [Recovered/Resolved]
